FAERS Safety Report 9491074 (Version 1)
Quarter: 2013Q3

REPORT INFORMATION
  Report Type: Spontaneous
  Country: US (occurrence: US)
  Receive Date: 20130830
  Receipt Date: 20130830
  Transmission Date: 20140515
  Serious: No
  Sender: FDA-Public Use
  Company Number: US-PFIZER INC-2013247470

PATIENT
  Age: 9 Year
  Sex: Female

DRUGS (2)
  1. GEODON [Suspect]
     Indication: INSOMNIA
     Dosage: 60 MG, DAILY
     Dates: start: 201308
  2. RISDONE [Suspect]
     Dosage: UNK

REACTIONS (2)
  - Off label use [Unknown]
  - Weight increased [Unknown]
